FAERS Safety Report 6093198-3 (Version None)
Quarter: 2009Q1

REPORT INFORMATION
  Report Type: 
  Country: None (occurrence: None)
  Receive Date: 20090226
  Receipt Date: 20080917
  Transmission Date: 20090719
  Serious: Yes (Other)
  Sender: FDA-Public Use
  Company Number: US-PFIZER INC-2009166372

PATIENT
  Age: 55 Year
  Sex: Male

DRUGS (2)
  1. NICOTROL [Suspect]
     Indication: EX-TOBACCO USER
     Dosage: UNK
     Dates: start: 20011028, end: 20011125
  2. METHADONE [Concomitant]

REACTIONS (7)
  - CONFUSIONAL STATE [None]
  - DEAFNESS [None]
  - DIZZINESS [None]
  - INTENTIONAL DRUG MISUSE [None]
  - MUSCULAR WEAKNESS [None]
  - NAUSEA [None]
  - SYNCOPE [None]
